FAERS Safety Report 21982234 (Version 7)
Quarter: 2023Q4

REPORT INFORMATION
  Report Type: Report from Study
  Country: US (occurrence: US)
  Receive Date: 20230213
  Receipt Date: 20231026
  Transmission Date: 20240110
  Serious: No
  Sender: FDA-Public Use
  Company Number: US-DECIPHERA PHARMACEUTICALS LLC-2023US000113

PATIENT
  Age: 74 Year
  Sex: Female

DRUGS (4)
  1. QINLOCK [Suspect]
     Active Substance: RIPRETINIB
     Indication: Gastrointestinal stromal tumour
     Dosage: 150 MILLIGRAM, QD
     Route: 048
     Dates: start: 20220812
  2. QINLOCK [Suspect]
     Active Substance: RIPRETINIB
     Dosage: 150 MILLIGRAM, QD
     Route: 048
  3. QINLOCK [Suspect]
     Active Substance: RIPRETINIB
     Dosage: 150 MILLIGRAM, BID
     Route: 048
  4. QINLOCK [Suspect]
     Active Substance: RIPRETINIB
     Dosage: 150 MILLIGRAM, BID
     Route: 048

REACTIONS (12)
  - Neoplasm skin [Recovering/Resolving]
  - Skin disorder [Recovering/Resolving]
  - Adverse event [Recovering/Resolving]
  - Bone contusion [Recovering/Resolving]
  - Tenderness [Recovering/Resolving]
  - Road traffic accident [Unknown]
  - Abdominal discomfort [Unknown]
  - Hyperkeratosis [Recovering/Resolving]
  - Fatigue [Unknown]
  - Pruritus [Recovering/Resolving]
  - Alopecia [Recovering/Resolving]
  - Extra dose administered [Unknown]
